FAERS Safety Report 21476282 (Version 2)
Quarter: 2022Q4

REPORT INFORMATION
  Report Type: Report from Study
  Country: CZ (occurrence: CZ)
  Receive Date: 20221019
  Receipt Date: 20221108
  Transmission Date: 20230112
  Serious: Yes (Death)
  Sender: FDA-Public Use
  Company Number: CZ-ABBVIE-4165269

PATIENT
  Age: 71 Year
  Sex: Male

DRUGS (8)
  1. CARBIDOPA\LEVODOPA [Suspect]
     Active Substance: CARBIDOPA\LEVODOPA
     Indication: Parkinson^s disease
     Dosage: MORNING DOSE 10 ML, CONTINUOUS DOSE 8.2 ML/HOUR, NIGHT DOSE 3 ML/HOUR, EXTRA DOSE 3.5 ML
     Route: 050
     Dates: start: 20151208, end: 20221016
  2. CARBIDOPA\LEVODOPA [Suspect]
     Active Substance: CARBIDOPA\LEVODOPA
  3. BACLOFEN [Concomitant]
     Active Substance: BACLOFEN
     Indication: Prophylaxis
     Dosage: 3 X 1.5
     Route: 048
     Dates: start: 20220913, end: 20221016
  4. DERIN [Concomitant]
     Indication: Prophylaxis
     Dosage: 0-0-1-1-1
     Route: 048
     Dates: start: 20220906, end: 20221016
  5. VITAMIN B COMPLEX [Concomitant]
     Active Substance: CYANOCOBALAMIN\DEXPANTHENOL\NIACINAMIDE\PYRIDOXINE HYDROCHLORIDE\RIBOFLAVIN 5^-PHOSPHATE SODIUM\THIA
     Indication: Prophylaxis
     Dosage: 1-0-0
     Route: 048
     Dates: end: 20221016
  6. MIRTAZAPINE [Concomitant]
     Active Substance: MIRTAZAPINE
     Indication: Psychiatric disorder prophylaxis
     Dosage: 0-0-1-0
     Route: 048
     Dates: start: 20151203, end: 20221016
  7. CITALOPRAM [Concomitant]
     Active Substance: CITALOPRAM HYDROBROMIDE
     Indication: Psychiatric disorder prophylaxis
     Dosage: 1-0-0
     Route: 048
     Dates: start: 20151218, end: 20221016
  8. FOLIC ACID [Concomitant]
     Active Substance: FOLIC ACID
     Indication: Prophylaxis
     Dosage: 1-0-0
     Route: 048
     Dates: end: 20221016

REACTIONS (1)
  - Death [Fatal]

NARRATIVE: CASE EVENT DATE: 20221016
